FAERS Safety Report 4727617-9 (Version None)
Quarter: 2005Q3

REPORT INFORMATION
  Report Type: 
  Country: None (occurrence: None)
  Receive Date: 20050728
  Receipt Date: 20050721
  Transmission Date: 20060218
  Serious: Yes (Death, Hospitalization)
  Sender: FDA-Public Use
  Company Number: US-AMGEN-US143592

PATIENT
  Sex: Female

DRUGS (3)
  1. ARANESP [Suspect]
     Indication: RENAL FAILURE CHRONIC
  2. BLOOD CELLS, PACKED HUMAN [Concomitant]
     Dates: start: 20030101
  3. UNSPECIFIED ANTINEOPLASTIC AGENT [Concomitant]
     Dates: start: 20000101, end: 20040501

REACTIONS (1)
  - INTESTINAL ISCHAEMIA [None]
